FAERS Safety Report 8402973-9 (Version None)
Quarter: 2012Q2

REPORT INFORMATION
  Report Type: 
  Country: None (occurrence: None)
  Receive Date: 20120601
  Receipt Date: 20120524
  Transmission Date: 20120825
  Serious: Yes (Other)
  Sender: FDA-Public Use
  Company Number: AU-ROCHE-1064246

PATIENT

DRUGS (3)
  1. TOCILIZUMAB [Suspect]
     Indication: TEMPORAL ARTERITIS
  2. METHOTREXATE [Suspect]
     Indication: TEMPORAL ARTERITIS
  3. PREDNISOLONE [Suspect]
     Indication: TEMPORAL ARTERITIS
     Dosage: 35-45 MG

REACTIONS (2)
  - HERPES SIMPLEX [None]
  - PULMONARY EMBOLISM [None]
